FAERS Safety Report 15391307 (Version 1)
Quarter: 2018Q3

REPORT INFORMATION
  Report Type: Spontaneous
  Country: US (occurrence: US)
  Receive Date: 20180917
  Receipt Date: 20180917
  Transmission Date: 20181010
  Serious: No
  Sender: FDA-Public Use
  Company Number: US-GLAXOSMITHKLINE-US2018164411

PATIENT
  Sex: Female

DRUGS (2)
  1. TYLENOL [Interacting]
     Active Substance: ACETAMINOPHEN
     Dosage: UNK
     Dates: start: 20180907
  2. ANORO ELLIPTA [Suspect]
     Active Substance: UMECLIDINIUM BROMIDE\VILANTEROL TRIFENATATE
     Dosage: UNK
     Dates: start: 201805

REACTIONS (3)
  - Drug interaction [Unknown]
  - Cystitis [Recovered/Resolved]
  - Bladder discomfort [Recovered/Resolved]

NARRATIVE: CASE EVENT DATE: 20180908
